FAERS Safety Report 9022019 (Version 4)
Quarter: 2014Q1

REPORT INFORMATION
  Report Type: Report from Study
  Country: US (occurrence: US)
  Receive Date: 20130118
  Receipt Date: 20140110
  Transmission Date: 20141002
  Serious: Yes (Death, Hospitalization)
  Sender: FDA-Public Use
  Company Number: US-PFIZER INC-2013001500

PATIENT
  Age: 61 Year
  Sex: Male
  Weight: 61.24 kg

DRUGS (21)
  1. CISPLATIN [Suspect]
     Indication: HEAD AND NECK CANCER METASTATIC
     Dosage: 183 MG
     Route: 042
     Dates: start: 20121210, end: 20121210
  2. 5-FLUOROURACIL BIOSYN [Suspect]
     Indication: HEAD AND NECK CANCER METASTATIC
     Dosage: 1830 MG, ONE INFUSION 96 HR
     Route: 042
     Dates: start: 20121210, end: 20121213
  3. CETUXIMAB [Suspect]
     Indication: HEAD AND NECK CANCER METASTATIC
     Dosage: 732 MG, UNK
     Route: 042
     Dates: start: 20121217, end: 20121217
  4. CETUXIMAB [Suspect]
     Dosage: 458 MG
     Route: 042
     Dates: start: 20121224, end: 20121224
  5. NORMAL SALINE [Concomitant]
     Dosage: 1 LITER, UNK
     Route: 042
  6. MAGNESIUM [Concomitant]
     Dosage: 2 MG, UNK
     Route: 042
  7. FENTANYL CITRATE [Concomitant]
     Dosage: UNK
     Dates: start: 20121204, end: 20130103
  8. OXYCODONE HYDROCHLORIDE W/PARACETAMOL [Concomitant]
     Dosage: UNK
     Dates: start: 20121217, end: 20121227
  9. DIPHENHYDRAMINE COMBINATIONS [Concomitant]
     Dosage: UNK
     Dates: start: 20121217, end: 20121224
  10. ENOXAPARIN [Concomitant]
     Dosage: UNK
     Dates: start: 20121224, end: 20130102
  11. METHYLPREDNISOLONE [Concomitant]
     Dosage: UNK
     Dates: start: 20121231, end: 20130103
  12. INSULIN LISPRO [Concomitant]
     Dosage: UNK
     Dates: start: 20121214, end: 20121224
  13. HUMAN INSULIN MIX [Concomitant]
     Dosage: UNK
     Dates: start: 20121214, end: 20121224
  14. INSULIN NPH [Concomitant]
     Dosage: UNK
     Dates: start: 20121226, end: 20130101
  15. INSULIN ASPART [Concomitant]
     Dosage: UNK
     Dates: start: 20121225, end: 20130102
  16. MORPHINE [Concomitant]
     Dosage: UNK
     Dates: start: 20121231, end: 20130105
  17. LISINOPRIL [Concomitant]
     Dosage: UNK
     Dates: start: 20121114, end: 20121224
  18. AMLODIPINE [Concomitant]
     Dosage: UNK
     Dates: start: 20121114, end: 20121224
  19. METOPROLOL [Concomitant]
     Dosage: UNK
     Dates: start: 20121114, end: 20121224
  20. APREPITANT [Concomitant]
     Dosage: UNK
     Dates: start: 20121210, end: 20121211
  21. POTASSIUM CHLORIDE [Concomitant]
     Dosage: UNK
     Dates: start: 20121217

REACTIONS (2)
  - Pneumonia [Not Recovered/Not Resolved]
  - Sepsis [Fatal]
